FAERS Safety Report 7108304-9 (Version None)
Quarter: 2010Q4

REPORT INFORMATION
  Report Type: 
  Country: None (occurrence: None)
  Receive Date: 20101117
  Receipt Date: 20101104
  Transmission Date: 20110411
  Serious: Yes (Other)
  Sender: FDA-Public Use
  Company Number: US-SANOFI-AVENTIS-2010SA060977

PATIENT
  Age: 45 Year
  Sex: Female

DRUGS (2)
  1. SOLOSTAR [Suspect]
  2. LANTUS [Suspect]
     Dosage: 30 UNITS IN MORNING AND 30 UNITS IN EVENING
     Route: 058

REACTIONS (3)
  - DEVICE MALFUNCTION [None]
  - INFLUENZA [None]
  - PRODUCT QUALITY ISSUE [None]
